FAERS Safety Report 18935332 (Version 2)
Quarter: 2021Q1

REPORT INFORMATION
  Report Type: Report from Study
  Country: FR (occurrence: FR)
  Receive Date: 20210224
  Receipt Date: 20210302
  Transmission Date: 20210420
  Serious: Yes (Death, Other)
  Sender: FDA-Public Use
  Company Number: FR-B.I. PHARMACEUTICALS,INC./RIDGEFIELD-2021-BI-085306

PATIENT
  Age: 70 Year
  Sex: Male

DRUGS (1)
  1. PRAXBIND [Suspect]
     Active Substance: IDARUCIZUMAB
     Indication: PROCOAGULANT THERAPY
     Dosage: FULL DOSE OF TWO VIALS (2 X 2.5 G) OF IDARUCIZUMAB FREQUENCY: 1, FREQUENCY UNIT: 809

REACTIONS (1)
  - Multiple organ dysfunction syndrome [Fatal]
